FAERS Safety Report 17716485 (Version 4)
Quarter: 2023Q1

REPORT INFORMATION
  Report Type: Spontaneous
  Country: PL (occurrence: PL)
  Receive Date: 20200428
  Receipt Date: 20230306
  Transmission Date: 20230418
  Serious: Yes (Hospitalization, Other)
  Sender: FDA-Public Use
  Company Number: PL-TEVA-2020-PL-1227921

PATIENT
  Age: 51 Year
  Sex: Male

DRUGS (9)
  1. CLORAZEPATE DIPOTASSIUM [Interacting]
     Active Substance: CLORAZEPATE DIPOTASSIUM
     Indication: Drug withdrawal syndrome
     Dosage: 80 MILLIGRAM DAILY; SECOND DAY AT DETOXIFICATION WARD
     Route: 065
  2. MIDAZOLAM HYDROCHLORIDE [Interacting]
     Active Substance: MIDAZOLAM HYDROCHLORIDE
     Indication: Drug abuse
     Dosage: 1500 MILLIGRAM DAILY;
     Route: 065
  3. MIDAZOLAM HYDROCHLORIDE [Interacting]
     Active Substance: MIDAZOLAM HYDROCHLORIDE
     Route: 065
  4. DIAZEPAM [Interacting]
     Active Substance: DIAZEPAM
     Indication: Drug abuse
     Dosage: TOTAL DOSE 700 MG
     Route: 065
  5. DIAZEPAM [Interacting]
     Active Substance: DIAZEPAM
     Indication: Drug withdrawal syndrome
     Dosage: 85 MILLIGRAM DAILY; FIRST DAY AT DETOXIFICATION WARD; LOADING DOSE
     Route: 065
  6. DIAZEPAM [Interacting]
     Active Substance: DIAZEPAM
     Dosage: 45 MILLIGRAM DAILY; SECOND DAY AT DETOXIFICATION WARD
     Route: 065
  7. DIAZEPAM [Interacting]
     Active Substance: DIAZEPAM
     Route: 065
  8. ESTAZOLAM [Suspect]
     Active Substance: ESTAZOLAM
     Indication: Drug abuse
     Route: 065
  9. THIOPENTAL [Concomitant]
     Active Substance: THIOPENTAL
     Indication: Drug withdrawal syndrome
     Route: 065

REACTIONS (10)
  - Drug withdrawal syndrome [Recovered/Resolved]
  - Drug abuse [Recovered/Resolved]
  - Status epilepticus [Recovered/Resolved]
  - Psychomotor hyperactivity [Recovered/Resolved]
  - Hallucination [Recovered/Resolved]
  - Delirium [Recovered/Resolved]
  - Patient uncooperative [Recovered/Resolved]
  - Drug ineffective [Unknown]
  - Drug interaction [Unknown]
  - Drug dependence [Unknown]
